FAERS Safety Report 4599973-6 (Version None)
Quarter: 2005Q1

REPORT INFORMATION
  Report Type: 
  Country: None (occurrence: None)
  Receive Date: 20050303
  Receipt Date: 20050225
  Transmission Date: 20050727
  Serious: Yes (Hospitalization, Other)
  Sender: FDA-Public Use
  Company Number: HQWYE355316FEB05

PATIENT
  Age: 37 Year
  Sex: Female

DRUGS (2)
  1. ADVIL [Suspect]
     Indication: EAR PAIN
     Dosage: 400 MG 3X PER 1 DAY ORAL
     Route: 048
     Dates: start: 20041230, end: 20050108
  2. ADVIL [Suspect]
     Indication: PHARYNGOLARYNGEAL PAIN
     Dosage: 400 MG 3X PER 1 DAY ORAL
     Route: 048
     Dates: start: 20041230, end: 20050108

REACTIONS (4)
  - ECZEMA [None]
  - PRURITUS [None]
  - PURULENT DISCHARGE [None]
  - SKIN FISSURES [None]
